FAERS Safety Report 25305349 (Version 1)
Quarter: 2025Q2

REPORT INFORMATION
  Report Type: Spontaneous
  Country: US (occurrence: None)
  Receive Date: 20250513
  Receipt Date: 20250513
  Transmission Date: 20250716
  Serious: Yes (Hospitalization)
  Sender: FDA-CTU
  Company Number: None

PATIENT
  Age: 75 Year
  Sex: Male
  Weight: 115 kg

DRUGS (6)
  1. AMOXICILLIN\CLAVULANATE POTASSIUM [Suspect]
     Active Substance: AMOXICILLIN\CLAVULANATE POTASSIUM
     Indication: Pneumonia
     Dosage: FREQUENCY : TWICE A DAY;?
     Route: 048
     Dates: start: 20240522
  2. NAPROXEN [Suspect]
     Active Substance: NAPROXEN
     Indication: Pain
     Route: 048
  3. CIPRO [Suspect]
     Active Substance: CIPROFLOXACIN HYDROCHLORIDE
  4. CLONAZEPAM [Suspect]
     Active Substance: CLONAZEPAM
  5. GABAPENTIN [Suspect]
     Active Substance: GABAPENTIN
  6. TRAZODONE [Suspect]
     Active Substance: TRAZODONE HYDROCHLORIDE

REACTIONS (6)
  - Tubulointerstitial nephritis [None]
  - Nephropathy toxic [None]
  - Fall [None]
  - Iron deficiency anaemia [None]
  - Therapy interrupted [None]
  - Treatment noncompliance [None]

NARRATIVE: CASE EVENT DATE: 20240528
